FAERS Safety Report 8385358-3 (Version None)
Quarter: 2012Q2

REPORT INFORMATION
  Report Type: 
  Country: None (occurrence: None)
  Receive Date: 20120525
  Receipt Date: 20120517
  Transmission Date: 20120825
  Serious: No
  Sender: FDA-Public Use
  Company Number: US-BIOGENIDEC-2012BI017524

PATIENT
  Age: 40 Year
  Sex: Male

DRUGS (1)
  1. TYSABRI [Suspect]
     Indication: MULTIPLE SCLEROSIS
     Route: 042
     Dates: start: 20120403

REACTIONS (6)
  - DIZZINESS [None]
  - MEMORY IMPAIRMENT [None]
  - FATIGUE [None]
  - TREMOR [None]
  - BALANCE DISORDER [None]
  - FEELING ABNORMAL [None]
